FAERS Safety Report 16191678 (Version 2)
Quarter: 2019Q2

REPORT INFORMATION
  Report Type: Spontaneous
  Country: AR (occurrence: AR)
  Receive Date: 20190412
  Receipt Date: 20190517
  Transmission Date: 20190711
  Serious: Yes (Other)
  Sender: FDA-Public Use
  Company Number: AR-009507513-1904ARG004021

PATIENT
  Age: 21 Year
  Sex: Female

DRUGS (1)
  1. IMPLANON [Suspect]
     Active Substance: ETONOGESTREL
     Indication: CONTRACEPTION
     Dosage: 1 IMPLANT
     Route: 059
     Dates: start: 201611, end: 201712

REACTIONS (4)
  - Scar [Unknown]
  - Implant site ulcer [Recovered/Resolved with Sequelae]
  - Pain in extremity [Unknown]
  - Implant site necrosis [Recovered/Resolved with Sequelae]

NARRATIVE: CASE EVENT DATE: 2016
